FAERS Safety Report 6312427-1 (Version None)
Quarter: 2009Q3

REPORT INFORMATION
  Report Type: 
  Country: None (occurrence: None)
  Receive Date: 20090813
  Receipt Date: 20090730
  Transmission Date: 20100115
  Serious: Yes (Hospitalization)
  Sender: FDA-Public Use
  Company Number: 8050028

PATIENT
  Age: 49 Year
  Sex: Female

DRUGS (9)
  1. KEPPRA [Suspect]
     Dosage: PO
     Dates: start: 20090703, end: 20090712
  2. BACTRIM [Concomitant]
  3. TIENAM [Concomitant]
  4. RIVOTRIL [Concomitant]
  5. AMIKLIN [Concomitant]
  6. GARDENAL [Concomitant]
  7. LOVENOX [Concomitant]
  8. VANCOMYCIN [Concomitant]
  9. ACUPAL [Concomitant]

REACTIONS (2)
  - CHOLESTASIS [None]
  - CYTOLYTIC HEPATITIS [None]
